FAERS Safety Report 13568600 (Version 1)
Quarter: 2017Q2

REPORT INFORMATION
  Report Type: Report from Study
  Country: US (occurrence: US)
  Receive Date: 20170522
  Receipt Date: 20170522
  Transmission Date: 20170830
  Serious: Yes (Other)
  Sender: FDA-Public Use
  Company Number: US-JNJFOC-20170520223

PATIENT
  Sex: Male

DRUGS (20)
  1. MUCINEX [Concomitant]
     Active Substance: GUAIFENESIN
  2. VICODIN [Concomitant]
     Active Substance: ACETAMINOPHEN\HYDROCODONE BITARTRATE
  3. ALLEGRA [Concomitant]
     Active Substance: FEXOFENADINE HYDROCHLORIDE
  4. ATIVAN [Concomitant]
     Active Substance: LORAZEPAM
  5. VALACYCLOVIR [Concomitant]
     Active Substance: VALACYCLOVIR HYDROCHLORIDE
  6. CARAFATE [Concomitant]
     Active Substance: SUCRALFATE
  7. COMBIVENT [Concomitant]
     Active Substance: ALBUTEROL SULFATE\IPRATROPIUM BROMIDE
  8. TAMSULOSIN [Suspect]
     Active Substance: TAMSULOSIN
     Indication: PRODUCT USED FOR UNKNOWN INDICATION
     Route: 065
  9. NEXIUM [Concomitant]
     Active Substance: ESOMEPRAZOLE MAGNESIUM
  10. SYMBICORT [Concomitant]
     Active Substance: BUDESONIDE\FORMOTEROL FUMARATE DIHYDRATE
  11. ALBUTEROL. [Concomitant]
     Active Substance: ALBUTEROL
  12. PREDNISONE. [Concomitant]
     Active Substance: PREDNISONE
  13. ZOFRAN [Concomitant]
     Active Substance: ONDANSETRON HYDROCHLORIDE
  14. RITUXAN [Concomitant]
     Active Substance: RITUXIMAB
  15. TORSEMIDE. [Concomitant]
     Active Substance: TORSEMIDE
  16. PROSCAR [Concomitant]
     Active Substance: FINASTERIDE
  17. ALLOPURINOL. [Concomitant]
     Active Substance: ALLOPURINOL
  18. FLUCONAZOLE. [Concomitant]
     Active Substance: FLUCONAZOLE
  19. IMBRUVICA [Suspect]
     Active Substance: IBRUTINIB
     Indication: CHRONIC LYMPHOCYTIC LEUKAEMIA
     Route: 048
     Dates: start: 20140305
  20. WARFARIN [Concomitant]
     Active Substance: WARFARIN

REACTIONS (4)
  - Urinary incontinence [Unknown]
  - Ear swelling [Unknown]
  - Ear haemorrhage [Unknown]
  - Sunburn [Unknown]
